FAERS Safety Report 11588628 (Version 1)
Quarter: 2015Q4

REPORT INFORMATION
  Report Type: Spontaneous
  Country: US (occurrence: None)
  Receive Date: 20151001
  Receipt Date: 20151001
  Transmission Date: 20160304
  Serious: Yes (Life-Threatening)
  Sender: FDA-Public Use
  Company Number: None

PATIENT
  Age: 63 Year
  Sex: Female
  Weight: 66.68 kg

DRUGS (6)
  1. MAGNESIUM [Concomitant]
     Active Substance: MAGNESIUM
  2. FASLODEX [Suspect]
     Active Substance: FULVESTRANT
     Indication: BONE CANCER
  3. VITAMIN D3 [Concomitant]
     Active Substance: CHOLECALCIFEROL
  4. CALCIUM [Concomitant]
     Active Substance: CALCIUM
  5. CENTRUM [Concomitant]
     Active Substance: VITAMINS
  6. OCUVITE [Concomitant]
     Active Substance: VITAMINS

REACTIONS (2)
  - No therapeutic response [None]
  - Suspected counterfeit product [None]

NARRATIVE: CASE EVENT DATE: 20150724
